FAERS Safety Report 7383328-5 (Version None)
Quarter: 2011Q1

REPORT INFORMATION
  Report Type: 
  Country: None (occurrence: None)
  Receive Date: 20110325
  Receipt Date: 20110325
  Transmission Date: 20110831
  Serious: Yes (Hospitalization)
  Sender: FDA-Public Use
  Company Number: None

PATIENT
  Age: 89 Year
  Sex: Female
  Weight: 55 kg

DRUGS (13)
  1. ACETAMINOPHEN [Concomitant]
  2. AMBIEN [Concomitant]
  3. ASPIRIN [Suspect]
     Indication: CORONARY ARTERY DISEASE
     Dosage: 81MG WITH SUPPER PO CHRONIC
     Route: 048
  4. NEURONTIN [Concomitant]
  5. CLONIDINE [Concomitant]
  6. LIPITOR [Concomitant]
  7. OMEPRAZOLE [Concomitant]
  8. MACRODANTIN [Concomitant]
  9. CRESTOR [Concomitant]
  10. SERTRALINE HYDROCHLORIDE [Concomitant]
  11. WARFARIN SODIUM [Suspect]
     Indication: CORONARY ARTERY DISEASE
     Dosage: 3MG DAILY PO CHRONIC
     Route: 048
  12. WARFARIN SODIUM [Suspect]
     Indication: ATRIAL FIBRILLATION
     Dosage: 3MG DAILY PO CHRONIC
     Route: 048
  13. FOLIC ACID [Concomitant]

REACTIONS (3)
  - GASTROINTESTINAL HAEMORRHAGE [None]
  - PANCREATITIS [None]
  - MALLORY-WEISS SYNDROME [None]
